FAERS Safety Report 21770666 (Version 4)
Quarter: 2023Q1

REPORT INFORMATION
  Report Type: Report from Study
  Country: US (occurrence: US)
  Receive Date: 20221223
  Receipt Date: 20230328
  Transmission Date: 20230417
  Serious: No
  Sender: FDA-Public Use
  Company Number: US-002147023-NVSC2022US295092

PATIENT
  Sex: Male

DRUGS (1)
  1. ENTRESTO [Suspect]
     Active Substance: SACUBITRIL\VALSARTAN
     Indication: Product used for unknown indication
     Dosage: 1 DOSAGE FORM, BID (24/26 MG)
     Route: 048
     Dates: start: 2022

REACTIONS (14)
  - Weight decreased [Unknown]
  - Nasopharyngitis [Unknown]
  - Chest pain [Unknown]
  - Vision blurred [Unknown]
  - Pain in extremity [Recovered/Resolved]
  - Gait disturbance [Unknown]
  - Memory impairment [Unknown]
  - Weight increased [Unknown]
  - Asthenia [Unknown]
  - Hunger [Unknown]
  - Heart rate abnormal [Unknown]
  - Dyspnoea [Unknown]
  - Cough [Unknown]
  - Hypotension [Unknown]
